FAERS Safety Report 7353577-0 (Version None)
Quarter: 2011Q1

REPORT INFORMATION
  Report Type: 
  Country: None (occurrence: None)
  Receive Date: 20110315
  Receipt Date: 20110301
  Transmission Date: 20110831
  Serious: Yes (Life-Threatening, Other)
  Sender: FDA-Public Use
  Company Number: FR-CELGENEUS-056-20785-10122865

PATIENT
  Sex: Male
  Weight: 81 kg

DRUGS (3)
  1. THALIDOMIDE [Suspect]
     Indication: MULTIPLE MYELOMA
     Dosage: 400 TO 100 MG/DAY
     Route: 048
     Dates: start: 20010821, end: 20081215
  2. LEVOTHYROX [Concomitant]
     Indication: HYPOTHYROIDISM
     Route: 048
     Dates: start: 20080701
  3. EXFORGE [Concomitant]
     Route: 048
     Dates: start: 20080401

REACTIONS (4)
  - PROSTATE CANCER [None]
  - ACUTE LYMPHOCYTIC LEUKAEMIA [None]
  - HYPOTHYROIDISM [None]
  - HYPERTENSION [None]
